FAERS Safety Report 11797744 (Version 1)
Quarter: 2015Q4

REPORT INFORMATION
  Report Type: Spontaneous
  Country: US (occurrence: US)
  Receive Date: 20151203
  Receipt Date: 20151203
  Transmission Date: 20160305
  Serious: No
  Sender: FDA-Public Use
  Company Number: US-ELI_LILLY_AND_COMPANY-US201512001007

PATIENT
  Sex: Male
  Weight: 100 kg

DRUGS (7)
  1. DULOXETINE HYDROCHLORIDE. [Suspect]
     Active Substance: DULOXETINE HYDROCHLORIDE
     Indication: FIBROMYALGIA
     Dosage: 20 MG, QD
     Route: 048
     Dates: start: 20151016, end: 20151020
  2. DULOXETINE HYDROCHLORIDE. [Suspect]
     Active Substance: DULOXETINE HYDROCHLORIDE
     Indication: POST HERPETIC NEURALGIA
  3. VITAMIN D 2000 [Concomitant]
     Indication: PROPHYLAXIS
     Dosage: 2000 IU, QD
     Route: 048
     Dates: start: 2014
  4. DULOXETINE HYDROCHLORIDE. [Suspect]
     Active Substance: DULOXETINE HYDROCHLORIDE
     Indication: SPINAL PAIN
  5. SUPER B COMPL [Concomitant]
     Indication: PROPHYLAXIS
     Dosage: UNK UNK, QD
     Route: 065
  6. LIPOFLAVONOID                      /08186801/ [Concomitant]
     Indication: TINNITUS
     Dosage: 2 DF, QD
     Route: 065
     Dates: start: 20151016
  7. DULOXETINE HYDROCHLORIDE. [Suspect]
     Active Substance: DULOXETINE HYDROCHLORIDE
     Indication: NEURALGIA

REACTIONS (4)
  - Feeling abnormal [Unknown]
  - Feeling cold [Unknown]
  - Discomfort [Unknown]
  - Chills [Unknown]
